FAERS Safety Report 9447579 (Version 2)
Quarter: 2013Q3

REPORT INFORMATION
  Report Type: Spontaneous
  Country: GB (occurrence: GB)
  Receive Date: 20130808
  Receipt Date: 20130906
  Transmission Date: 20140515
  Serious: Yes (Life-Threatening, Hospitalization, Other)
  Sender: FDA-Public Use
  Company Number: GB-JNJFOC-20130801612

PATIENT
  Age: 31 Year
  Sex: Male

DRUGS (2)
  1. REMICADE [Suspect]
     Indication: CROHN^S DISEASE
     Dosage: TOTAL DAILY DOSE WAS 5
     Route: 042
     Dates: start: 20110512, end: 201307
  2. AZATHIOPRINE [Concomitant]
     Route: 065
     Dates: start: 2010, end: 201307

REACTIONS (1)
  - B-cell lymphoma [Not Recovered/Not Resolved]
